FAERS Safety Report 5836561-5 (Version None)
Quarter: 2008Q3

REPORT INFORMATION
  Report Type: 
  Country: None (occurrence: None)
  Receive Date: 20080807
  Receipt Date: 20080728
  Transmission Date: 20090109
  Serious: Yes (Hospitalization)
  Sender: FDA-Public Use
  Company Number: GB-TEVA-175148ISR

PATIENT
  Age: 7 Year

DRUGS (3)
  1. PREDNISOLONE [Suspect]
  2. IMMUNE GLOBULIN INTRAVENOUS (HUMAN) [Concomitant]
     Route: 042
  3. RITUXIMAB [Concomitant]

REACTIONS (3)
  - ANOREXIA [None]
  - COUGH [None]
  - PULMONARY HYPERTENSION [None]
